FAERS Safety Report 6872727-3 (Version None)
Quarter: 2010Q3

REPORT INFORMATION
  Report Type: 
  Country: None (occurrence: None)
  Receive Date: 20100723
  Receipt Date: 20081208
  Transmission Date: 20110219
  Serious: Yes (Other)
  Sender: FDA-Public Use
  Company Number: US-PFIZER INC-2008089440

PATIENT
  Sex: Female
  Weight: 64.545 kg

DRUGS (6)
  1. CHANTIX [Suspect]
     Indication: SMOKING CESSATION THERAPY
     Dates: start: 20080501
  2. SIMVASTATIN [Concomitant]
  3. BETA BLOCKING AGENTS [Concomitant]
  4. POTASSIUM [Concomitant]
  5. INSULIN [Concomitant]
  6. FUROSEMIDE [Concomitant]

REACTIONS (2)
  - BLOOD GLUCOSE ABNORMAL [None]
  - MYOCARDIAL INFARCTION [None]
